FAERS Safety Report 24291736 (Version 2)
Quarter: 2024Q3

REPORT INFORMATION
  Report Type: Spontaneous
  Country: US (occurrence: US)
  Receive Date: 20240906
  Receipt Date: 20240912
  Transmission Date: 20241017
  Serious: Yes (Other)
  Sender: PFIZER
  Company Number: US-PFIZER INC-202400249445

PATIENT
  Age: 81 Year
  Sex: Male

DRUGS (1)
  1. ELREXFIO [Suspect]
     Active Substance: ELRANATAMAB-BCMM
     Dosage: 32 MG
     Dates: start: 20240826

REACTIONS (2)
  - Cytokine release syndrome [Recovered/Resolved]
  - Immune effector cell-associated neurotoxicity syndrome [Recovered/Resolved]

NARRATIVE: CASE EVENT DATE: 20240829
